FAERS Safety Report 5080490-4 (Version None)
Quarter: 2006Q3

REPORT INFORMATION
  Report Type: 
  Country: None (occurrence: None)
  Receive Date: 20060815
  Receipt Date: 19990326
  Transmission Date: 20061208
  Serious: Yes (Hospitalization)
  Sender: FDA-Public Use
  Company Number: FR-SOLVAY-00200000088

PATIENT
  Age: 73 Year
  Sex: Male

DRUGS (7)
  1. COVERSYL [Suspect]
     Indication: CARDIAC FAILURE CONGESTIVE
     Dosage: DAILY DOSE: 2 MG. FREQUENCY:UNKNOWN
     Route: 048
     Dates: start: 19980324, end: 20001109
  2. COVERSYL [Suspect]
     Dosage: DAILY DOSE: 4 MG. FREQUENCY:UNKNOWN
     Route: 048
     Dates: start: 20001109
  3. ZOCOR [Concomitant]
     Indication: ILL-DEFINED DISORDER
     Dosage: DAILY DOSE: UNK. FREQUENCY:UNKNOWN
     Route: 048
     Dates: start: 19930101
  4. PREVISCAN [Concomitant]
     Indication: ILL-DEFINED DISORDER
     Dosage: DAILY DOSE: UNK. FREQUENCY:UNKNOWN
     Route: 048
     Dates: start: 19980601
  5. ISOSORBIDE DINITRATE [Concomitant]
     Indication: ILL-DEFINED DISORDER
     Dosage: DAILY DOSE: UNK. FREQUENCY:UNKNOWN
     Route: 048
     Dates: start: 19910101
  6. CORDARONE [Concomitant]
     Indication: ILL-DEFINED DISORDER
     Dosage: DAILY DOSE: UNK. FREQUENCY:UNKNOWN
     Route: 048
     Dates: start: 19980701
  7. DIGOXIN [Concomitant]
     Indication: ILL-DEFINED DISORDER
     Dosage: DAILY DOSE: UNK. FREQUENCY:UNKNOWN
     Route: 065

REACTIONS (4)
  - ATRIAL FIBRILLATION [None]
  - DISEASE RECURRENCE [None]
  - DYSPNOEA EXERTIONAL [None]
  - PULMONARY OEDEMA [None]
